FAERS Safety Report 13228065 (Version 4)
Quarter: 2018Q2

REPORT INFORMATION
  Report Type: Spontaneous
  Country: US (occurrence: US)
  Receive Date: 20170213
  Receipt Date: 20180523
  Transmission Date: 20180711
  Serious: Yes (Hospitalization)
  Sender: FDA-Public Use
  Company Number: US-BAUSCH-BL-2017-003866

PATIENT
  Age: 73 Year
  Sex: Male
  Weight: 84.9 kg

DRUGS (2)
  1. XIFAXAN [Suspect]
     Active Substance: RIFAXIMIN
     Indication: CHRONIC HEPATIC FAILURE
     Route: 048
     Dates: start: 2016
  2. XIFAXAN [Suspect]
     Active Substance: RIFAXIMIN
     Indication: HEPATIC CIRRHOSIS

REACTIONS (9)
  - Cholecystitis [Unknown]
  - Drug dose omission [Unknown]
  - Liver disorder [Unknown]
  - Biliary sepsis [Unknown]
  - Movement disorder [Not Recovered/Not Resolved]
  - Confusional state [Unknown]
  - Ascites [Unknown]
  - Generalised oedema [Unknown]
  - Ammonia increased [Not Recovered/Not Resolved]

NARRATIVE: CASE EVENT DATE: 201606
